FAERS Safety Report 13177522 (Version 1)
Quarter: 2017Q1

REPORT INFORMATION
  Report Type: Report from Study
  Country: US (occurrence: US)
  Receive Date: 20170201
  Receipt Date: 20170201
  Transmission Date: 20170428
  Serious: No
  Sender: FDA-Public Use
  Company Number: US-EXELIXIS-CABO-16006429

PATIENT
  Sex: Male

DRUGS (14)
  1. COMETRIQ [Suspect]
     Active Substance: CABOZANTINIB S-MALATE
     Indication: LUNG NEOPLASM MALIGNANT
  2. DELSYM [Concomitant]
     Active Substance: DEXTROMETHORPHAN
  3. ALBUTEROL INHALER [Concomitant]
     Active Substance: ALBUTEROL
  4. SYMBICORT [Concomitant]
     Active Substance: BUDESONIDE\FORMOTEROL FUMARATE DIHYDRATE
  5. CLARITIN [Concomitant]
     Active Substance: LORATADINE
  6. MULTIVITAMIN STRESS FORMULA [Concomitant]
  7. MUCINEX [Concomitant]
     Active Substance: GUAIFENESIN
  8. FLONASE [Concomitant]
     Active Substance: FLUTICASONE PROPIONATE
  9. COMETRIQ [Suspect]
     Active Substance: CABOZANTINIB S-MALATE
     Indication: RENAL CANCER
     Dosage: 60 MG, QD
     Route: 048
     Dates: start: 20160514
  10. SPIRIVA [Concomitant]
     Active Substance: TIOTROPIUM BROMIDE MONOHYDRATE
  11. CARDIZEM CD [Concomitant]
     Active Substance: DILTIAZEM HYDROCHLORIDE
  12. PREVACID [Concomitant]
     Active Substance: LANSOPRAZOLE
  13. SIMVASTATIN. [Concomitant]
     Active Substance: SIMVASTATIN
  14. LISINOPRIL. [Concomitant]
     Active Substance: LISINOPRIL

REACTIONS (18)
  - Weight increased [Recovering/Resolving]
  - Weight decreased [Unknown]
  - Malaise [Unknown]
  - Off label use [Unknown]
  - Pain of skin [Not Recovered/Not Resolved]
  - Skin exfoliation [Not Recovered/Not Resolved]
  - Glossitis [Unknown]
  - Asthenia [Recovering/Resolving]
  - Dysphonia [Unknown]
  - Inappropriate schedule of drug administration [Unknown]
  - Muscle atrophy [Unknown]
  - Hair colour changes [Recovering/Resolving]
  - Abdominal pain [Not Recovered/Not Resolved]
  - Vomiting [Unknown]
  - Diarrhoea [Not Recovered/Not Resolved]
  - Pharyngitis [Unknown]
  - Glossodynia [Unknown]
  - Dry skin [Recovering/Resolving]
